FAERS Safety Report 7258820-4 (Version None)
Quarter: 2011Q1

REPORT INFORMATION
  Report Type: 
  Country: None (occurrence: None)
  Receive Date: 20110129
  Receipt Date: 20100528
  Transmission Date: 20110831
  Serious: No
  Sender: FDA-Public Use
  Company Number: US-ABBOTT-10P-163-0647566-00

PATIENT
  Sex: Female
  Weight: 93.07 kg

DRUGS (3)
  1. BENICAR [Concomitant]
     Indication: HYPERTENSION
  2. HUMIRA [Suspect]
     Indication: RHEUMATOID ARTHRITIS
     Route: 058
     Dates: start: 20100322
  3. VICODIN [Concomitant]
     Indication: RHEUMATOID ARTHRITIS

REACTIONS (1)
  - BLOOD PRESSURE INCREASED [None]
